FAERS Safety Report 6507149-8 (Version None)
Quarter: 2009Q4

REPORT INFORMATION
  Report Type: 
  Country: None (occurrence: None)
  Receive Date: 20091221
  Receipt Date: 20091210
  Transmission Date: 20100525
  Serious: Yes (Other)
  Sender: FDA-Public Use
  Company Number: PHHY2009CA51454

PATIENT
  Sex: Female

DRUGS (5)
  1. ACLASTA [Suspect]
     Indication: OSTEONECROSIS
     Dosage: 5MG,UNK
     Route: 042
     Dates: start: 20081112
  2. ACLASTA [Suspect]
     Dosage: 5 MG, UNK
     Dates: start: 20091209
  3. ADALAT CC [Concomitant]
     Dosage: 30(UNIT NOT SPECIFIED), OD
  4. VITAMIN D [Concomitant]
     Dosage: 100(UNIT NOT SPECIFIED), UBK
  5. CALCIUM [Concomitant]

REACTIONS (1)
  - CATARACT OPERATION [None]
